FAERS Safety Report 6880135-4 (Version None)
Quarter: 2010Q3

REPORT INFORMATION
  Report Type: 
  Country: None (occurrence: None)
  Receive Date: 20100728
  Receipt Date: 20091229
  Transmission Date: 20110219
  Serious: Yes (Other)
  Sender: FDA-Public Use
  Company Number: US-BRISTOL-MYERS SQUIBB COMPANY-14904817

PATIENT
  Sex: Female

DRUGS (2)
  1. SPRYCEL [Suspect]
  2. TAMOXIFEN [Interacting]

REACTIONS (2)
  - DRUG INTERACTION [None]
  - MALIGNANT NEOPLASM PROGRESSION [None]
